FAERS Safety Report 9844918 (Version 2)
Quarter: 2014Q1

REPORT INFORMATION
  Report Type: Spontaneous
  Country: IT (occurrence: IT)
  Receive Date: 20140127
  Receipt Date: 20140211
  Transmission Date: 20141002
  Serious: Yes (Hospitalization, Other)
  Sender: FDA-Public Use
  Company Number: IT-RANBAXY-2014RR-77647

PATIENT
  Sex: Male

DRUGS (8)
  1. CEFTAZIDIME [Suspect]
     Indication: SEPSIS
     Dosage: UNK
     Route: 065
  2. AMPICILLIN [Suspect]
     Indication: SEPSIS
     Dosage: 25 MG/KG/Q8H
     Route: 065
  3. AMOXICILLIN/CLAVULANIC ACID [Suspect]
     Indication: KLEBSIELLA INFECTION
     Dosage: 50 MG/KG/Q12H
     Route: 065
  4. AMIKACIN [Suspect]
     Indication: SEPSIS
     Dosage: 10 MG/KG/Q12H
     Route: 065
  5. TEICOPLANIN [Suspect]
     Indication: SEPSIS
     Dosage: UNK
     Route: 065
  6. BECLOMETHASONE [Suspect]
     Indication: BRONCHOPULMONARY DYSPLASIA
     Dosage: 0.4 MG, 6 TIMES A DAY
     Route: 055
  7. NITRIC OXIDE [Concomitant]
     Indication: PRODUCT USED FOR UNKNOWN INDICATION
     Dosage: 20 PPM, ON DAY 1
     Route: 055
  8. SALBUTAMOL [Concomitant]
     Indication: BRONCHOPULMONARY DYSPLASIA
     Dosage: UNK
     Route: 065

REACTIONS (1)
  - Candida pneumonia [Recovered/Resolved]
